APPROVED DRUG PRODUCT: DIVALPROEX SODIUM
Active Ingredient: DIVALPROEX SODIUM
Strength: EQ 500MG VALPROIC ACID
Dosage Form/Route: TABLET, EXTENDED RELEASE;ORAL
Application: A078700 | Product #001
Applicant: COSETTE PHARMACEUTICALS INC
Approved: Aug 3, 2009 | RLD: No | RS: No | Type: DISCN